FAERS Safety Report 21553148 (Version 1)
Quarter: 2022Q4

REPORT INFORMATION
  Report Type: Report from Study
  Country: US (occurrence: US)
  Receive Date: 20221104
  Receipt Date: 20221104
  Transmission Date: 20230112
  Serious: No
  Sender: FDA-Public Use
  Company Number: US-ABBVIE-4187748

PATIENT
  Sex: Female

DRUGS (11)
  1. IMBRUVICA [Suspect]
     Active Substance: IBRUTINIB
     Indication: Chronic lymphocytic leukaemia
     Route: 048
     Dates: start: 20220903
  2. Acyclovir Oral Tablet 400 MG [Concomitant]
     Indication: Product used for unknown indication
     Route: 048
  3. Effexor XR Oral Capsule Extended Re 37.5 mg [Concomitant]
     Indication: Product used for unknown indication
     Route: 048
  4. Acetaminophen Oral Tablet 325 MG [Concomitant]
     Indication: Product used for unknown indication
     Route: 048
  5. Amlodipine Besylate Oral Tablet 5 MG [Concomitant]
     Indication: Product used for unknown indication
     Route: 048
  6. Atenolol Oral Tablet 50 MG [Concomitant]
     Indication: Product used for unknown indication
     Route: 048
  7. Magnesium Oxide Oral Tablet 400 MG [Concomitant]
     Indication: Product used for unknown indication
  8. Atorvastatin Calcium Oral Tablet 40 mg [Concomitant]
     Indication: Product used for unknown indication
     Route: 048
  9. METFORMIN HCl Oral Tablet 500 MG [Concomitant]
     Indication: Product used for unknown indication
     Route: 048
  10. AMOXICILLIN\CLAVULANATE POTASSIUM [Concomitant]
     Active Substance: AMOXICILLIN\CLAVULANATE POTASSIUM
     Indication: Product used for unknown indication
  11. Lovastatin Oral Tablet 40 MG [Concomitant]
     Indication: Product used for unknown indication
     Route: 048

REACTIONS (2)
  - Headache [Unknown]
  - Nasal congestion [Unknown]

NARRATIVE: CASE EVENT DATE: 20220101
